FAERS Safety Report 23823599 (Version 1)
Quarter: 2024Q2

REPORT INFORMATION
  Report Type: Spontaneous
  Country: US (occurrence: US)
  Receive Date: 20240507
  Receipt Date: 20240507
  Transmission Date: 20240716
  Serious: No
  Sender: FDA-Public Use
  Company Number: US-UCBSA-2023054034

PATIENT
  Sex: Male
  Weight: 81.179 kg

DRUGS (1)
  1. CIMZIA [Suspect]
     Active Substance: CERTOLIZUMAB PEGOL
     Indication: Axial spondyloarthritis
     Dosage: 200 MILLIGRAM, EV 2 WEEKS(QOW)
     Route: 058
     Dates: start: 202309

REACTIONS (5)
  - Urinary tract infection [Unknown]
  - Oropharyngeal pain [Unknown]
  - Illness [Unknown]
  - Adverse drug reaction [Unknown]
  - Infection [Unknown]

NARRATIVE: CASE EVENT DATE: 20230101
